FAERS Safety Report 25701110 (Version 1)
Quarter: 2025Q3

REPORT INFORMATION
  Report Type: Spontaneous
  Country: US (occurrence: US)
  Receive Date: 20250819
  Receipt Date: 20250819
  Transmission Date: 20251020
  Serious: Yes (Hospitalization)
  Sender: MSN LABORATORIES PRIVATE LIMITED
  Company Number: US-MSNLABS-2025MSNLIT02175

PATIENT

DRUGS (8)
  1. CLOBAZAM [Suspect]
     Active Substance: CLOBAZAM
     Indication: Generalised tonic-clonic seizure
     Dosage: 10 MG AT BEDTIME FOR 2 WEEKS IN SUMMER
     Route: 065
     Dates: start: 2023
  2. CLOBAZAM [Suspect]
     Active Substance: CLOBAZAM
     Dosage: 20 MG NIGHTLY,2 WEEKS POST-INITIAL DOSE
     Route: 065
  3. CLOBAZAM [Suspect]
     Active Substance: CLOBAZAM
     Dosage: 4 WEEKS POST-INITIAL DOSE
     Route: 065
  4. CLOBAZAM [Suspect]
     Active Substance: CLOBAZAM
     Dosage: 6 WEEKS POST-INITIAL DOSE
     Route: 065
  5. CLOBAZAM [Suspect]
     Active Substance: CLOBAZAM
     Dosage: 10 WEEKS POST-INITIAL DOSE
     Route: 065
  6. CLOBAZAM [Suspect]
     Active Substance: CLOBAZAM
     Dosage: 12 WEEKS POST-INITIAL DOSE
     Route: 065
  7. CENOBAMATE [Suspect]
     Active Substance: CENOBAMATE
     Indication: Generalised tonic-clonic seizure
     Dosage: NIGHTLY
     Route: 065
  8. LAMOTRIGINE [Concomitant]
     Active Substance: LAMOTRIGINE
     Dosage: 700 MG DAILY
     Route: 065

REACTIONS (2)
  - Somnolence [Recovered/Resolved]
  - Drug interaction [Recovered/Resolved]
